FAERS Safety Report 9332481 (Version 1)
Quarter: 2013Q2

REPORT INFORMATION
  Report Type: Spontaneous
  Country: ZA (occurrence: ZA)
  Receive Date: 20130606
  Receipt Date: 20130606
  Transmission Date: 20140414
  Serious: Yes (Death, Hospitalization)
  Sender: FDA-Public Use
  Company Number: ZA-JNJFOC-20130600135

PATIENT
  Age: 66 Year
  Sex: Female

DRUGS (11)
  1. XARELTO 10MG JANSSEN [Suspect]
     Indication: THROMBOSIS PROPHYLAXIS
     Route: 048
     Dates: start: 20130524, end: 20130526
  2. XARELTO 10MG JANSSEN [Suspect]
     Indication: ORTHOPAEDIC PROCEDURE
     Route: 048
     Dates: start: 20130524, end: 20130526
  3. CONTROLOC [Concomitant]
     Route: 065
  4. CYMBALTA [Concomitant]
     Route: 065
  5. DORMONOCT [Concomitant]
     Route: 065
  6. ENOXAPARIN [Concomitant]
     Route: 065
  7. CELEBREX [Concomitant]
     Route: 065
  8. PANADO [Concomitant]
     Route: 065
  9. PARACETAMOL [Concomitant]
     Route: 065
  10. ZIAK [Concomitant]
     Route: 065
  11. ATORVASTATIN [Concomitant]
     Route: 065

REACTIONS (2)
  - Pulmonary embolism [Fatal]
  - Drug ineffective [Unknown]
